FAERS Safety Report 4817118-1 (Version None)
Quarter: 2005Q3

REPORT INFORMATION
  Report Type: 
  Country: None (occurrence: None)
  Receive Date: 20050929
  Receipt Date: 20050608
  Transmission Date: 20060218
  Serious: No
  Sender: FDA-Public Use
  Company Number: 05P-163-0302627-00

PATIENT
  Age: 59 Year
  Sex: Female
  Weight: 82.5547 kg

DRUGS (6)
  1. HUMIRA [Suspect]
     Indication: CROHN'S DISEASE
     Dosage: 40 MG, SUBCUTANEOUS
     Route: 058
     Dates: start: 20050525
  2. INSULIN LISPRO [Concomitant]
  3. LANGES [Concomitant]
  4. LOSARTAN POTASSIUM [Concomitant]
  5. ESTERIFIED ESTROGENS [Concomitant]
  6. CETIRIZINE HYDROCHLORIDE [Concomitant]

REACTIONS (3)
  - INJECTION SITE RASH [None]
  - JOINT SWELLING [None]
  - RASH [None]
